FAERS Safety Report 4361017-9 (Version None)
Quarter: 2004Q2

REPORT INFORMATION
  Report Type: 
  Country: None (occurrence: None)
  Receive Date: 20040517
  Receipt Date: 20040506
  Transmission Date: 20050107
  Serious: Yes (Life-Threatening, Hospitalization)
  Sender: FDA-Public Use
  Company Number: GB-JNJFOC-20040501181

PATIENT
  Sex: Male
  Weight: 87.3 kg

DRUGS (5)
  1. REMICADE (INFLIXIMAB, RECOMBINANT) LYOPHILIZED POWDER [Suspect]
     Indication: RHEUMATOID ARTHRITIS
     Dosage: 3 MG/KG
     Dates: start: 20030627, end: 20030826
  2. METHOTREXATE [Suspect]
     Indication: RHEUMATOID ARTHRITIS
     Dosage: 20 MG, ORAL
     Dates: start: 19970601, end: 20030826
  3. HYDROXYCHLOROQUINE SULFATE [Concomitant]
  4. CO-PROXAMOL (APOREX) [Concomitant]
  5. LOSEC (OMEPRAZOLE) [Concomitant]

REACTIONS (2)
  - DRUG INTERACTION [None]
  - PNEUMONITIS [None]
